FAERS Safety Report 26022373 (Version 1)
Quarter: 2025Q4

REPORT INFORMATION
  Report Type: Spontaneous
  Country: CN (occurrence: CN)
  Receive Date: 20251110
  Receipt Date: 20251110
  Transmission Date: 20260118
  Serious: Yes (Hospitalization)
  Sender: PFIZER
  Company Number: CN-PFIZER INC-PV202500130923

PATIENT
  Age: 77 Year
  Sex: Female
  Weight: 50.7 kg

DRUGS (3)
  1. EPIRUBICIN [Suspect]
     Active Substance: EPIRUBICIN
     Indication: Peripheral T-cell lymphoma unspecified
     Dosage: 100 MG, 1X/DAY
     Route: 041
     Dates: start: 20251024, end: 20251024
  2. CYCLOPHOSPHAMIDE [Suspect]
     Active Substance: CYCLOPHOSPHAMIDE
     Indication: Peripheral T-cell lymphoma unspecified
     Dosage: 560 MG/M2, 1X/DAY
     Dates: start: 20251024, end: 20251024
  3. VINCRISTINE SULFATE [Suspect]
     Active Substance: VINCRISTINE SULFATE
     Indication: Peripheral T-cell lymphoma unspecified
     Dosage: 1.0 MG/M2, 1X/DAY
     Route: 041
     Dates: start: 20251024, end: 20251024

REACTIONS (3)
  - Myelosuppression [Recovering/Resolving]
  - Skin lesion [Recovering/Resolving]
  - Extravasation blood [Recovering/Resolving]

NARRATIVE: CASE EVENT DATE: 20251027
